FAERS Safety Report 12492189 (Version 1)
Quarter: 2016Q2

REPORT INFORMATION
  Report Type: Spontaneous
  Country: TR (occurrence: TR)
  Receive Date: 20160623
  Receipt Date: 20160623
  Transmission Date: 20160815
  Serious: Yes (Life-Threatening)
  Sender: FDA-Public Use
  Company Number: TR-SUN PHARMACEUTICAL INDUSTRIES LTD-2015RR-119013

PATIENT
  Age: 70 Day
  Sex: Male

DRUGS (5)
  1. PREDNISOLONE. [Suspect]
     Active Substance: PREDNISOLONE
     Indication: MEVALONIC ACIDURIA
     Dosage: 2 MG/KG, AT THE AGE OF 70 DAYS
     Route: 065
  2. COENZYME Q10 [Concomitant]
     Active Substance: UBIDECARENONE
     Indication: MEVALONIC ACIDURIA
     Dosage: AT THE AGE OF 70 DAYS
     Route: 065
  3. PREDNISOLONE. [Suspect]
     Active Substance: PREDNISOLONE
     Indication: MEVALONIC ACIDURIA
     Dosage: STOPPED AT 25 DAYS
     Route: 065
  4. IBUPROFEN. [Suspect]
     Active Substance: IBUPROFEN
     Indication: MEVALONIC ACIDURIA
     Dosage: AT THE AGE OF 80 DAYS
     Route: 065
  5. CANAKINUMAB [Suspect]
     Active Substance: CANAKINUMAB
     Indication: MEVALONIC ACIDURIA
     Dosage: AT THE AGE OF 124 DAYS
     Route: 065

REACTIONS (1)
  - Drug ineffective [Unknown]
